FAERS Safety Report 4755033-2 (Version None)
Quarter: 2005Q3

REPORT INFORMATION
  Report Type: 
  Country: None (occurrence: None)
  Receive Date: 20050829
  Receipt Date: 20050210
  Transmission Date: 20060218
  Serious: Yes (Hospitalization)
  Sender: FDA-Public Use
  Company Number: FR-BRISTOL-MYERS SQUIBB COMPANY-12865929

PATIENT
  Age: 55 Year
  Sex: Female

DRUGS (6)
  1. ENDOXAN [Suspect]
     Indication: BREAST CANCER
     Route: 042
     Dates: start: 20041228, end: 20041228
  2. FARMORUBICIN [Suspect]
     Indication: BREAST CANCER
     Route: 048
     Dates: start: 20041228, end: 20041228
  3. CARDIOXANE [Suspect]
     Indication: BREAST CANCER
     Route: 042
     Dates: start: 20041228, end: 20041228
  4. FLUOROURACIL [Suspect]
     Indication: BREAST CANCER
     Route: 042
     Dates: start: 20041228, end: 20041228
  5. KYTRIL [Concomitant]
  6. ONDANSETRON [Concomitant]

REACTIONS (7)
  - COMA [None]
  - DEPRESSED LEVEL OF CONSCIOUSNESS [None]
  - LUNG DISORDER [None]
  - NEUTROPENIA [None]
  - RESPIRATORY DISTRESS [None]
  - SOMNOLENCE [None]
  - TRANSAMINASES INCREASED [None]
